FAERS Safety Report 9720594 (Version 5)
Quarter: 2014Q2

REPORT INFORMATION
  Report Type: Spontaneous
  Country: MA (occurrence: MA)
  Receive Date: 20131129
  Receipt Date: 20140417
  Transmission Date: 20141212
  Serious: Yes (Hospitalization, Other)
  Sender: FDA-Public Use
  Company Number: PHHY2013MA137786

PATIENT
  Sex: Female

DRUGS (2)
  1. TASIGNA [Suspect]
     Indication: CHRONIC MYELOID LEUKAEMIA
     Dosage: 600 MG, BID
     Route: 048
     Dates: start: 20130219, end: 20131019
  2. TASIGNA [Suspect]
     Route: 048
     Dates: end: 20140128

REACTIONS (13)
  - Haemorrhage [Not Recovered/Not Resolved]
  - Transient ischaemic attack [Not Recovered/Not Resolved]
  - Sensory loss [Unknown]
  - Aphasia [Unknown]
  - Motor dysfunction [Unknown]
  - Balance disorder [Unknown]
  - Gait disturbance [Unknown]
  - Hemiplegia [Recovered/Resolved]
  - Haemorrhagic stroke [Recovered/Resolved]
  - Cerebral haemorrhage [Recovering/Resolving]
  - Ischaemia [Recovering/Resolving]
  - Thrombosis [Recovering/Resolving]
  - Thrombocytopenia [Unknown]
